FAERS Safety Report 5211076-6 (Version None)
Quarter: 2006Q4

REPORT INFORMATION
  Report Type: 
  Country: None (occurrence: None)
  Receive Date: 20061114
  Receipt Date: 20060731
  Transmission Date: 20070319
  Serious: No
  Sender: FDA-Public Use
  Company Number: S06-USA-02979-01

PATIENT
  Age: 59 Year
  Sex: Male

DRUGS (12)
  1. NAMENDA [Suspect]
     Indication: DEMENTIA ALZHEIMER'S TYPE
     Dosage: 5 MG QD PO
     Route: 048
     Dates: start: 20060724, end: 20060730
  2. NAMENDA [Suspect]
     Indication: DEMENTIA ALZHEIMER'S TYPE
     Dosage: 5 MG BID PO
     Route: 048
     Dates: start: 20060731
  3. EXELON [Concomitant]
  4. ZOCOR [Concomitant]
  5. NIACIN [Concomitant]
  6. VESICARE [Concomitant]
  7. NEXIUM [Concomitant]
  8. QUINAPRIL [Concomitant]
  9. TERAZOSIN HCL [Concomitant]
  10. GABAPENTIN [Concomitant]
  11. VITAMINS NOS [Concomitant]
  12. ASPIRIN [Concomitant]

REACTIONS (2)
  - DIZZINESS [None]
  - GAIT DISTURBANCE [None]
